FAERS Safety Report 4280090-X (Version None)
Quarter: 2004Q1

REPORT INFORMATION
  Report Type: 
  Country: None (occurrence: None)
  Receive Date: 20040123
  Receipt Date: 20040109
  Transmission Date: 20041129
  Serious: Yes (Life-Threatening, Hospitalization)
  Sender: FDA-Public Use
  Company Number: M03-INT-113

PATIENT
  Sex: Male

DRUGS (13)
  1. INTEGRILIN [Suspect]
     Indication: ANGINA PECTORIS
     Dosage: INTRAVENOUS
     Route: 042
     Dates: start: 20031029
  2. ACETYLSALICYLIC ACID SRT [Concomitant]
  3. ALLOPURINOL [Concomitant]
  4. BETA BLOCKING AGENTS [Concomitant]
  5. ISOSORBIDE DINITRATE [Concomitant]
  6. LIPITOR [Concomitant]
  7. LOVENOX [Concomitant]
  8. METOPROLOL [Concomitant]
  9. PLAVIX [Concomitant]
  10. PROZAC [Concomitant]
  11. VALSARTAN [Concomitant]
  12. VERAPAMIL [Concomitant]
  13. WARFARIN SODIUM [Concomitant]

REACTIONS (3)
  - CATHETER SITE HAEMORRHAGE [None]
  - PETECHIAE [None]
  - THROMBOCYTOPENIA [None]
